FAERS Safety Report 18456345 (Version 2)
Quarter: 2020Q4

REPORT INFORMATION
  Report Type: Report from Study
  Country: US (occurrence: US)
  Receive Date: 20201103
  Receipt Date: 20201111
  Transmission Date: 20210114
  Serious: Yes (Death, Other)
  Sender: FDA-Public Use
  Company Number: US-PFIZER INC-2020421412

PATIENT
  Age: 27 Year
  Sex: Male

DRUGS (2)
  1. MEPERIDINE HCL [Suspect]
     Active Substance: MEPERIDINE HYDROCHLORIDE
     Indication: SICKLE CELL DISEASE
     Dosage: 75 MG (Q2-3H)
     Route: 040
  2. METHADONE [Concomitant]
     Active Substance: METHADONE HYDROCHLORIDE
     Dosage: UNK (40-70 MG QD)

REACTIONS (1)
  - Generalised tonic-clonic seizure [Fatal]
